FAERS Safety Report 4658430-9 (Version None)
Quarter: 2005Q2

REPORT INFORMATION
  Report Type: 
  Country: None (occurrence: None)
  Receive Date: 20050510
  Receipt Date: 20050510
  Transmission Date: 20051028
  Serious: No
  Sender: FDA-Public Use
  Company Number: None

PATIENT
  Sex: Female

DRUGS (11)
  1. RISPERDAL [Suspect]
  2. DEPAKOTE [Concomitant]
  3. FEOSOL [Concomitant]
  4. ABILIFY [Concomitant]
  5. ASPIRIN [Concomitant]
  6. CLARINEX [Concomitant]
  7. COLAC [Concomitant]
  8. DILANTIN [Concomitant]
  9. HALDOL [Concomitant]
  10. K-DUR 10 [Concomitant]
  11. SYNTHROID [Concomitant]

REACTIONS (1)
  - ORAL INTAKE REDUCED [None]
